FAERS Safety Report 16590420 (Version 1)
Quarter: 2019Q3

REPORT INFORMATION
  Report Type: Spontaneous
  Country: US (occurrence: US)
  Receive Date: 20190718
  Receipt Date: 20190718
  Transmission Date: 20191004
  Serious: Yes (Other)
  Sender: FDA-Public Use
  Company Number: US-ROCHE-2356748

PATIENT
  Age: 50 Year
  Sex: Male

DRUGS (1)
  1. OCREVUS [Suspect]
     Active Substance: OCRELIZUMAB
     Indication: RELAPSING-REMITTING MULTIPLE SCLEROSIS
     Dosage: 21/DEC/2017, RECEIVED SAME SUBSEQUENT DOSE
     Route: 065
     Dates: start: 20171207

REACTIONS (1)
  - Penile squamous cell carcinoma [Unknown]

NARRATIVE: CASE EVENT DATE: 20190702
